FAERS Safety Report 20145972 (Version 1)
Quarter: 2021Q4

REPORT INFORMATION
  Report Type: Spontaneous
  Country: US (occurrence: None)
  Receive Date: 20211203
  Receipt Date: 20211203
  Transmission Date: 20220303
  Serious: No
  Sender: FDA-Public Use
  Company Number: None

PATIENT
  Age: 56 Year
  Sex: Female
  Weight: 94.5 kg

DRUGS (8)
  1. REMDESIVIR [Suspect]
     Active Substance: REMDESIVIR
     Indication: COVID-19
     Dosage: FREQUENCY : TWICE A DAY;?
     Route: 042
     Dates: start: 20210803, end: 20210806
  2. FLOVENT [Concomitant]
     Active Substance: FLUTICASONE PROPIONATE
  3. CLARITIN [Concomitant]
     Active Substance: LORATADINE
  4. CALCIUM [Concomitant]
     Active Substance: CALCIUM
  5. COENZYME Q10 [Concomitant]
     Active Substance: DIETARY SUPPLEMENT\UBIDECARENONE
  6. VITAMINS [Concomitant]
     Active Substance: VITAMINS
  7. ZINC [Concomitant]
     Active Substance: ZINC
  8. VITAMIN D [Concomitant]
     Active Substance: VITAMIN D NOS

REACTIONS (2)
  - Tongue discomfort [None]
  - Tongue discolouration [None]

NARRATIVE: CASE EVENT DATE: 20210810
